FAERS Safety Report 7282878-X (Version None)
Quarter: 2011Q1

REPORT INFORMATION
  Report Type: 
  Country: None (occurrence: None)
  Receive Date: 20110209
  Receipt Date: 20090914
  Transmission Date: 20110831
  Serious: Yes (Hospitalization)
  Sender: FDA-Public Use
  Company Number: JP-BRISTOL-MYERS SQUIBB COMPANY-14575369

PATIENT
  Age: 82 Year
  Sex: Female
  Weight: 38 kg

DRUGS (10)
  1. VENA [Concomitant]
     Indication: PREMEDICATION
     Dosage: 5 DF- 5 TABS
     Route: 048
     Dates: start: 20081020, end: 20090305
  2. ERBITUX [Suspect]
     Indication: COLON CANCER
     Dosage: IST INF ON 20OCT08 520MG; 29OCTREDUCED TO 300MG;LAST INF: ON 05-MAR-09.TOTAL THERAPY DUR 136 DAYS
     Route: 042
     Dates: start: 20081020, end: 20081020
  3. IRINOTECAN HCL [Suspect]
     Indication: COLON CANCER
     Dosage: 20OCT08-20OCT08 160MG; 11DEC08-11DEC08 100MG; 08JAN TO 05MAR09- 60MG 1 IN 3 WK 56 DAYS.
     Route: 042
     Dates: start: 20081020, end: 20090305
  4. DEXART [Concomitant]
     Indication: PREMEDICATION
     Route: 042
     Dates: start: 20081020, end: 20090305
  5. OLMETEC [Concomitant]
     Dosage: TABLET
     Route: 048
     Dates: start: 20070808, end: 20090309
  6. LASIX [Concomitant]
     Dosage: TABLET
     Route: 048
     Dates: start: 20090205, end: 20090309
  7. BIOFERMIN [Concomitant]
     Dosage: 3 DF- 3 TABS
     Route: 048
     Dates: start: 20080616
  8. ALDACTONE [Concomitant]
     Dosage: TABLET
     Route: 048
     Dates: start: 20090129, end: 20090309
  9. KYTRIL [Concomitant]
     Indication: ANTIEMETIC SUPPORTIVE CARE
     Dates: start: 20081020
  10. PARIET [Concomitant]
     Dosage: TABLET
     Route: 048
     Dates: start: 20080428

REACTIONS (3)
  - MALAISE [None]
  - DIARRHOEA [None]
  - DECREASED APPETITE [None]
